FAERS Safety Report 24025977 (Version 2)
Quarter: 2024Q2

REPORT INFORMATION
  Report Type: Report from Study
  Country: BD (occurrence: BD)
  Receive Date: 20240628
  Receipt Date: 20240628
  Transmission Date: 20240716
  Serious: No
  Sender: FDA-Public Use
  Company Number: BD-ROCHE-3531512

PATIENT
  Age: 56 Year
  Sex: Female

DRUGS (6)
  1. PHESGO [Suspect]
     Active Substance: HYALURONIDASE-ZZXF\PERTUZUMAB\TRASTUZUMAB
     Indication: HER2 positive breast cancer
     Dosage: DOSE: LOADING DOSE 1200MG AND MAINTENANCE DOSE 600 MG
     Route: 058
     Dates: start: 20240206
  2. CLONAZEPAM [Concomitant]
     Active Substance: CLONAZEPAM
     Route: 048
  3. FLUCLOXACILLIN [Concomitant]
     Active Substance: FLUCLOXACILLIN
     Route: 048
  4. ACETAMINOPHEN [Concomitant]
     Active Substance: ACETAMINOPHEN
     Route: 048
  5. TRAMADOL [Concomitant]
     Active Substance: TRAMADOL\TRAMADOL HYDROCHLORIDE
     Route: 048
  6. FLUPENTIXOL\MELITRACEN [Concomitant]
     Active Substance: FLUPENTIXOL\MELITRACEN
     Route: 048

REACTIONS (1)
  - Pain in extremity [Unknown]
